FAERS Safety Report 18799601 (Version 1)
Quarter: 2021Q1

REPORT INFORMATION
  Report Type: Spontaneous
  Country: RU (occurrence: RU)
  Receive Date: 20210128
  Receipt Date: 20210128
  Transmission Date: 20210419
  Serious: Yes (Hospitalization)
  Sender: FDA-Public Use
  Company Number: RU-GRANULES-RU-2021GRALIT00059

PATIENT
  Sex: Male

DRUGS (9)
  1. MOMETASONE [Suspect]
     Active Substance: MOMETASONE
     Indication: DERMATITIS ATOPIC
     Route: 065
  2. TACROLIMUS. [Interacting]
     Active Substance: TACROLIMUS
     Indication: PRODUCT USED FOR UNKNOWN INDICATION
     Route: 061
  3. PANCREATIN [Suspect]
     Active Substance: PANCRELIPASE
     Indication: DERMATITIS ATOPIC
     Route: 065
  4. BETAMETHASONE VALERATE. [Suspect]
     Active Substance: BETAMETHASONE VALERATE
     Indication: DERMATITIS ATOPIC
     Route: 065
  5. CETIRIZINE [Suspect]
     Active Substance: CETIRIZINE HYDROCHLORIDE
     Indication: DERMATITIS ATOPIC
     Route: 065
  6. POLYMETHYLSILOXANE POLYHYDRATE [DEVICE] [Suspect]
     Active Substance: DEVICE
     Indication: DERMATITIS ATOPIC
     Route: 065
  7. METHYLPREDNISOLONE ACEPONATE [Suspect]
     Active Substance: METHYLPREDNISOLONE ACEPONATE
     Indication: DERMATITIS ATOPIC
     Route: 065
  8. DIOSMECTITE [Suspect]
     Active Substance: MONTMORILLONITE
     Indication: DERMATITIS ATOPIC
     Route: 065
  9. METHYLTHIONINIUM CHLORIDE [Interacting]
     Active Substance: METHYLENE BLUE
     Indication: SKIN ABRASION
     Route: 061

REACTIONS (2)
  - Drug resistance [Recovering/Resolving]
  - Condition aggravated [Recovering/Resolving]
